FAERS Safety Report 21038243 (Version 2)
Quarter: 2022Q3

REPORT INFORMATION
  Report Type: Spontaneous
  Country: DE (occurrence: DE)
  Receive Date: 20220704
  Receipt Date: 20220727
  Transmission Date: 20221026
  Serious: Yes (Other)
  Sender: FDA-Public Use
  Company Number: DE-ALKEM LABORATORIES LIMITED-DE-ALKEM-2022-06477

PATIENT
  Age: 73 Year
  Sex: Female
  Weight: 46 kg

DRUGS (4)
  1. DEFERASIROX [Suspect]
     Active Substance: DEFERASIROX
     Indication: Serum ferritin increased
     Dosage: 1 DOSAGE FORM, EVERY 1 DAY
     Route: 065
     Dates: start: 2017
  2. DEFERASIROX [Suspect]
     Active Substance: DEFERASIROX
     Indication: Iron overload
     Dosage: 2 DOSAGE FORM, EVERY 1 DAY
     Route: 065
     Dates: start: 20210901
  3. DEFERASIROX [Suspect]
     Active Substance: DEFERASIROX
     Dosage: 720 MILLIGRAM, EVERY 1 DAY
     Route: 065
     Dates: start: 20210901
  4. HUMAN RED BLOOD CELL [Concomitant]
     Active Substance: HUMAN RED BLOOD CELL
     Indication: Myelodysplastic syndrome
     Dosage: EVERY 4 WEEK
     Route: 065

REACTIONS (10)
  - Haemoglobin decreased [Not Recovered/Not Resolved]
  - Oral discomfort [Unknown]
  - Diarrhoea [Unknown]
  - Malaise [Unknown]
  - Constipation [Unknown]
  - Fatigue [Unknown]
  - Asthenia [Unknown]
  - Splenomegaly [Unknown]
  - Serum ferritin abnormal [Not Recovered/Not Resolved]
  - Lip blister [Unknown]

NARRATIVE: CASE EVENT DATE: 20210901
